FAERS Safety Report 9159315 (Version 1)
Quarter: 2013Q1

REPORT INFORMATION
  Report Type: Spontaneous
  Country: GB (occurrence: None)
  Receive Date: 20130213
  Receipt Date: 20130213
  Transmission Date: 20140127
  Serious: Yes (Other)
  Sender: FDA-Public Use
  Company Number: 2013048050

PATIENT
  Age: 45 Year
  Sex: Male
  Weight: 129 kg

DRUGS (4)
  1. FRAGMIN (DALTEPARIN SODIUM) SOLUTION FOR INJECTION [Suspect]
  2. ESCITALOPRAM (ESCITALOPRAM) [Concomitant]
  3. MOMETASONE FUROATE (MOMETASONE FUROATE) [Concomitant]
  4. ZYPREXA (OLANZAPINE) [Concomitant]

REACTIONS (5)
  - Abdominal pain upper [None]
  - Hyperhidrosis [None]
  - Muscle spasms [None]
  - Paraesthesia [None]
  - Cold sweat [None]
